FAERS Safety Report 9921261 (Version 1)
Quarter: 2014Q1

REPORT INFORMATION
  Report Type: Spontaneous
  Country: US (occurrence: None)
  Receive Date: 20140221
  Receipt Date: 20140221
  Transmission Date: 20141002
  Serious: Yes (Other)
  Sender: FDA-Public Use
  Company Number: None

PATIENT
  Age: 32 Year
  Sex: Female

DRUGS (2)
  1. WARFARIN [Suspect]
     Indication: PULMONARY EMBOLISM
     Dosage: 9/MAR/2014
     Route: 048
  2. WARFARIN [Suspect]
     Indication: PROTEIN S DEFICIENCY
     Dosage: 9/MAR/2014
     Route: 048

REACTIONS (1)
  - Drug ineffective [None]
